FAERS Safety Report 12614089 (Version 4)
Quarter: 2016Q3

REPORT INFORMATION
  Report Type: Spontaneous
  Country: FR (occurrence: FR)
  Receive Date: 20160802
  Receipt Date: 20160930
  Transmission Date: 20161109
  Serious: Yes (Other)
  Sender: FDA-Public Use
  Company Number: FR-PFIZER INC-2016172060

PATIENT
  Sex: Female

DRUGS (6)
  1. IMETH [Suspect]
     Active Substance: METHOTREXATE SODIUM
     Indication: ANKYLOSING SPONDYLITIS
     Dosage: 15 MG (ON SATURDAYS)
     Route: 065
  2. SPECIAFOLDINE [Suspect]
     Active Substance: FOLIC ACID
     Dosage: UNK
     Route: 065
  3. DAFALGAN CODEINE [Concomitant]
     Active Substance: ACETAMINOPHEN\CODEINE PHOSPHATE
     Dosage: DAILY
  4. CIMZIA [Concomitant]
     Active Substance: CERTOLIZUMAB PEGOL
     Dosage: UNK (1 IN 15 D)
  5. ARCOXIA [Concomitant]
     Active Substance: ETORICOXIB
     Indication: PAIN
     Dosage: 60 MG, UNK
  6. CYPROTERONE [Concomitant]
     Active Substance: CYPROTERONE
     Dosage: UNK

REACTIONS (6)
  - Product use issue [Unknown]
  - Limb discomfort [Unknown]
  - Erythema [Unknown]
  - Peptic ulcer [Unknown]
  - Fatigue [Unknown]
  - Abdominal pain upper [Unknown]
